FAERS Safety Report 22338618 (Version 1)
Quarter: 2023Q2

REPORT INFORMATION
  Report Type: Spontaneous
  Country: US (occurrence: None)
  Receive Date: 20230518
  Receipt Date: 20230518
  Transmission Date: 20230721
  Serious: No
  Sender: FDA-Public Use
  Company Number: None

PATIENT
  Age: 57 Year
  Sex: Male
  Weight: 54 kg

DRUGS (1)
  1. METHYLPHENIDATE [Suspect]
     Active Substance: METHYLPHENIDATE
     Indication: Attention deficit hyperactivity disorder
     Route: 048
     Dates: start: 20230429, end: 20230517

REACTIONS (9)
  - Nausea [None]
  - Dyspepsia [None]
  - Headache [None]
  - Insomnia [None]
  - Suspected product contamination [None]
  - Drug ineffective [None]
  - Product substitution issue [None]
  - Therapeutic response changed [None]
  - Product availability issue [None]

NARRATIVE: CASE EVENT DATE: 20230517
